FAERS Safety Report 17159337 (Version 1)
Quarter: 2019Q4

REPORT INFORMATION
  Report Type: Spontaneous
  Country: US (occurrence: US)
  Receive Date: 20191215
  Receipt Date: 20191215
  Transmission Date: 20200122
  Serious: Yes (Other)
  Sender: FDA-Public Use
  Company Number: None

PATIENT
  Age: 57 Year
  Sex: Female

DRUGS (8)
  1. CLINDAMYCIN. [Concomitant]
     Active Substance: CLINDAMYCIN
  2. ZINC. [Concomitant]
     Active Substance: ZINC
  3. VITAMIN C [Concomitant]
     Active Substance: ASCORBIC ACID
  4. MAGNESIUM [Concomitant]
     Active Substance: MAGNESIUM
  5. MULTI VITAMINS [Concomitant]
     Active Substance: VITAMINS
  6. PREGABALIN 100 MG, GENERIC FOR LYRICA, SCIENGEN [Suspect]
     Active Substance: PREGABALIN
     Indication: FIBROMYALGIA
     Dosage: ??          QUANTITY:1 CAPSULE(S);?
     Route: 048
     Dates: start: 20191210
  7. CALCIUM [Concomitant]
     Active Substance: CALCIUM
  8. VITAMIN B12 [Concomitant]
     Active Substance: CYANOCOBALAMIN

REACTIONS (2)
  - Pain [None]
  - Product substitution issue [None]

NARRATIVE: CASE EVENT DATE: 20191210
